FAERS Safety Report 10562664 (Version 1)
Quarter: 2014Q4

REPORT INFORMATION
  Report Type: Spontaneous
  Country: US (occurrence: None)
  Receive Date: 20141103
  Receipt Date: 20141103
  Transmission Date: 20150529
  Serious: No
  Sender: FDA-Public Use
  Company Number: None

PATIENT
  Age: 52 Year
  Sex: Female
  Weight: 83.46 kg

DRUGS (1)
  1. NIASPAN ER [Suspect]
     Active Substance: NIACIN
     Indication: BLOOD CHOLESTEROL
     Dosage: 1 PILL
     Route: 048
     Dates: start: 20141028, end: 20141031

REACTIONS (2)
  - Gait disturbance [None]
  - Back pain [None]

NARRATIVE: CASE EVENT DATE: 20141031
